FAERS Safety Report 16608547 (Version 1)
Quarter: 2019Q3

REPORT INFORMATION
  Report Type: Spontaneous
  Country: US (occurrence: US)
  Receive Date: 20190719
  Receipt Date: 20190719
  Transmission Date: 20191004
  Serious: Yes (Hospitalization)
  Sender: FDA-Public Use
  Company Number: None

PATIENT
  Age: 6 Year
  Sex: Female

DRUGS (14)
  1. GENOTROPIN [Suspect]
     Active Substance: SOMATROPIN
     Indication: TURNER^S SYNDROME
     Route: 058
     Dates: start: 20150605
  2. ATIVAN [Concomitant]
     Active Substance: LORAZEPAM
  3. ENALAPRIL [Concomitant]
     Active Substance: ENALAPRIL
  4. LACTOBACILLU [Concomitant]
  5. OMEPRAZOLE. [Concomitant]
     Active Substance: OMEPRAZOLE
  6. VITAMIN D [Concomitant]
     Active Substance: VITAMIN D NOS
  7. CLONIDINE. [Concomitant]
     Active Substance: CLONIDINE
  8. GENOTROPIN [Suspect]
     Active Substance: SOMATROPIN
     Indication: HYPOPITUITARISM
     Route: 058
     Dates: start: 20150605
  9. DILAUDID [Concomitant]
     Active Substance: HYDROMORPHONE HYDROCHLORIDE
  10. SPIRONOLACT [Concomitant]
     Active Substance: SPIRONOLACTONE
  11. ASPIRIN. [Concomitant]
     Active Substance: ASPIRIN
  12. LASIX [Concomitant]
     Active Substance: FUROSEMIDE
  13. RANITIDINE. [Concomitant]
     Active Substance: RANITIDINE
  14. POLY-VI-SOL [Concomitant]
     Active Substance: VITAMINS

REACTIONS (2)
  - Femur fracture [None]
  - Therapy cessation [None]

NARRATIVE: CASE EVENT DATE: 20190718
